FAERS Safety Report 25705247 (Version 1)
Quarter: 2025Q3

REPORT INFORMATION
  Report Type: Spontaneous
  Country: US (occurrence: None)
  Receive Date: 20250819
  Receipt Date: 20250819
  Transmission Date: 20251021
  Serious: Yes (Disabling, Other)
  Sender: FDA-CTU
  Company Number: None

PATIENT
  Age: 56 Year
  Sex: Female
  Weight: 63 kg

DRUGS (4)
  1. RECLAST [Suspect]
     Active Substance: ZOLEDRONIC ACID
     Indication: Osteoporosis
     Route: 042
     Dates: start: 20250627
  2. Levothyroxin 88 [Concomitant]
  3. Vitamin D Calcium [Concomitant]
  4. Magnesium Omega 3 [Concomitant]

REACTIONS (11)
  - Dizziness [None]
  - Headache [None]
  - Asthenia [None]
  - Arthralgia [None]
  - Brain fog [None]
  - Dizziness [None]
  - Malaise [None]
  - Vertigo [None]
  - Pain in jaw [None]
  - Peripheral swelling [None]
  - Peripheral swelling [None]

NARRATIVE: CASE EVENT DATE: 20250627
